FAERS Safety Report 7647119-X (Version None)
Quarter: 2011Q3

REPORT INFORMATION
  Report Type: 
  Country: None (occurrence: None)
  Receive Date: 20110801
  Receipt Date: 20110724
  Transmission Date: 20111222
  Serious: Yes (Other)
  Sender: FDA-Public Use
  Company Number: EG-JNJFOC-20110711780

PATIENT
  Sex: Male

DRUGS (3)
  1. TOPAMAX [Suspect]
     Dosage: 2ND WEEK
     Route: 048
  2. TOPAMAX [Suspect]
     Indication: EPILEPSY
     Dosage: 1ST WEEK
     Route: 048
  3. DEPAKENE [Concomitant]
     Indication: EPILEPSY
     Route: 065

REACTIONS (1)
  - COGNITIVE DISORDER [None]
